FAERS Safety Report 5259849-8 (Version None)
Quarter: 2007Q1

REPORT INFORMATION
  Report Type: 
  Country: None (occurrence: None)
  Receive Date: 20070309
  Receipt Date: 20070202
  Transmission Date: 20070707
  Serious: No
  Sender: FDA-Public Use
  Company Number: ZA-AVENTIS-200711948GDDC

PATIENT
  Sex: Male

DRUGS (1)
  1. ARAVA [Suspect]
     Route: 048
     Dates: end: 20060801

REACTIONS (1)
  - DRUG EXPOSURE DURING PREGNANCY [None]
